FAERS Safety Report 7506305-X (Version None)
Quarter: 2011Q2

REPORT INFORMATION
  Report Type: 
  Country: None (occurrence: None)
  Receive Date: 20110526
  Receipt Date: 20110318
  Transmission Date: 20111010
  Serious: No
  Sender: FDA-Public Use
  Company Number: US-ABBOTT-11P-163-0712939-00

PATIENT
  Sex: Female
  Weight: 63.56 kg

DRUGS (6)
  1. ZEMPLAR [Suspect]
     Indication: RENAL DISORDER
     Dosage: IN THE MORNING
     Dates: start: 20110318
  2. ATENOLOL [Concomitant]
     Indication: HYPERTENSION
  3. ACETAMINOPHEN [Concomitant]
     Indication: ARTHRITIS
  4. ALLOPURINOL [Concomitant]
     Indication: GOUT
  5. LYRICA [Concomitant]
     Indication: POST HERPETIC NEURALGIA
  6. NORVASC [Concomitant]
     Indication: HYPERTENSION

REACTIONS (1)
  - SOMNOLENCE [None]
